FAERS Safety Report 10427578 (Version 2)
Quarter: 2014Q4

REPORT INFORMATION
  Report Type: Spontaneous
  Country: JP (occurrence: JP)
  Receive Date: 20140903
  Receipt Date: 20141003
  Transmission Date: 20150528
  Serious: Yes (Other)
  Sender: FDA-Public Use
  Company Number: JP-PFIZER INC-2014242781

PATIENT
  Age: 75 Year
  Sex: Female

DRUGS (3)
  1. MUCOSTA [Concomitant]
     Active Substance: REBAMIPIDE
  2. CHAMPIX [Suspect]
     Active Substance: VARENICLINE TARTRATE
     Indication: SMOKING CESSATION THERAPY
     Dosage: 0.5 MG, DAILY
     Route: 048
     Dates: start: 20140829, end: 20140829
  3. MYONAL [Concomitant]
     Active Substance: EPERISONE HYDROCHLORIDE

REACTIONS (2)
  - Haematochezia [Unknown]
  - Diarrhoea [Unknown]

NARRATIVE: CASE EVENT DATE: 20140829
